FAERS Safety Report 15627524 (Version 9)
Quarter: 2019Q3

REPORT INFORMATION
  Report Type: Spontaneous
  Country: DE (occurrence: DE)
  Receive Date: 20181116
  Receipt Date: 20190911
  Transmission Date: 20191004
  Serious: Yes (Life-Threatening, Hospitalization, Other)
  Sender: FDA-Public Use
  Company Number: PHHY2018DE154587

PATIENT
  Age: 55 Year
  Sex: Male
  Weight: 72 kg

DRUGS (24)
  1. MOVICOL [Concomitant]
     Active Substance: POLYETHYLENE GLYCOL 3350\POTASSIUM CHLORIDE\SODIUM BICARBONATE\SODIUM CHLORIDE
     Indication: PRODUCT USED FOR UNKNOWN INDICATION
     Dosage: 1 DF, BID
     Route: 065
  2. VALSARTAN 1 A PHARMA [Suspect]
     Active Substance: VALSARTAN
     Indication: HYPERTENSION
     Dosage: 1 DF, BID (IN THE MORNING, IN THE EVENING)
     Route: 065
  3. TOCTINO [Concomitant]
     Active Substance: ALITRETINOIN
     Indication: PRODUCT USED FOR UNKNOWN INDICATION
     Dosage: 1 DF, QD
     Route: 065
  4. FRAGMIN [Concomitant]
     Active Substance: DALTEPARIN SODIUM
     Dosage: 1 DF, QD
     Route: 065
     Dates: start: 20090620
  5. CLINDAMYCIN. [Concomitant]
     Active Substance: CLINDAMYCIN
     Indication: PRODUCT USED FOR UNKNOWN INDICATION
     Dosage: 600 MG, QD (IN THE EVENING)
     Route: 065
     Dates: start: 20170119, end: 20170119
  6. CLINDAMYCIN. [Concomitant]
     Active Substance: CLINDAMYCIN
     Dosage: 600 MG, TID (IN THE MORNINGS/AT/NOON/EVENINGS)
     Route: 065
     Dates: start: 20170120, end: 20170131
  7. VALSARTAN 1 A PHARMA [Suspect]
     Active Substance: VALSARTAN
     Dosage: 1 DF, QD (MORNING) (1-0-0)
     Route: 065
     Dates: start: 20170815, end: 201712
  8. OMEPRAZOLE. [Concomitant]
     Active Substance: OMEPRAZOLE
     Indication: GASTROOESOPHAGEAL REFLUX DISEASE
     Dosage: 1 DF, QD ONCE DAILY (IN THE MORNINGS)
     Route: 048
  9. L-THYROXIN [Concomitant]
     Active Substance: LEVOTHYROXINE SODIUM
     Dosage: UNK UNK, QD (0.5X25UG) (IN THE MORNING)
     Route: 048
  10. CIPROFLOXACIN. [Concomitant]
     Active Substance: CIPROFLOXACIN
     Indication: PRODUCT USED FOR UNKNOWN INDICATION
     Dosage: 500 MG, BID (MORNING AND EVENING)
     Route: 065
     Dates: start: 20180311, end: 20180321
  11. LOPERAMIDE [Concomitant]
     Active Substance: LOPERAMIDE
     Indication: PRODUCT USED FOR UNKNOWN INDICATION
     Dosage: UNK
     Route: 048
     Dates: start: 20170122
  12. VALSARTAN 1 A PHARMA [Suspect]
     Active Substance: VALSARTAN
     Dosage: 1 DF, QD (MORNING) (1-0-0)
     Route: 065
     Dates: start: 201701
  13. VALSARTAN 1 A PHARMA [Suspect]
     Active Substance: VALSARTAN
     Dosage: 1 DF, QD (MORNING) (1-0-0)
     Route: 065
     Dates: start: 201801
  14. VALSARTAN 1 A PHARMA [Suspect]
     Active Substance: VALSARTAN
     Dosage: 160 MG, UNK
     Route: 048
     Dates: start: 20180710
  15. OMEPRAZOLE. [Concomitant]
     Active Substance: OMEPRAZOLE
     Dosage: 1 DF, BID (IN THE MORNINGS AND IN THE EVENINGS)
     Route: 048
  16. TINOLOL [Concomitant]
     Indication: PRODUCT USED FOR UNKNOWN INDICATION
     Dosage: 1 OT, BID
     Route: 065
  17. MOVICOL [Concomitant]
     Active Substance: POLYETHYLENE GLYCOL 3350\POTASSIUM CHLORIDE\SODIUM BICARBONATE\SODIUM CHLORIDE
     Dosage: 1 DF, TID (IN THE MORNINGS/AT/NOON/EVENINGS)
     Route: 048
  18. LAVANID [Concomitant]
     Indication: PRODUCT USED FOR UNKNOWN INDICATION
     Dosage: UNK
     Route: 065
  19. VALSARTAN 1 A PHARMA [Suspect]
     Active Substance: VALSARTAN
     Dosage: 160 MG, QD (IN THE MORNING)
     Route: 048
     Dates: start: 20130207
  20. L-THYROXIN [Concomitant]
     Active Substance: LEVOTHYROXINE SODIUM
     Indication: HYPOTHYROIDISM
     Dosage: 1 DF, QD (100UG) (IN THE MORNING)
     Route: 048
  21. FRAGMIN [Concomitant]
     Active Substance: DALTEPARIN SODIUM
     Indication: ANTICOAGULATION DRUG LEVEL
     Dosage: 1 DF, QD
     Route: 065
     Dates: start: 20090616
  22. IBUPROFEN. [Concomitant]
     Active Substance: IBUPROFEN
     Indication: PRODUCT USED FOR UNKNOWN INDICATION
     Dosage: 800 MG, PRN
     Route: 048
  23. ONDANSETRAN [Concomitant]
     Active Substance: ONDANSETRON HYDROCHLORIDE
     Indication: PRODUCT USED FOR UNKNOWN INDICATION
     Dosage: UNK UNK, PRN
     Route: 065
  24. CLEXANE [Concomitant]
     Active Substance: ENOXAPARIN SODIUM
     Indication: PRODUCT USED FOR UNKNOWN INDICATION
     Dosage: 0.8 OT, QD (IN THE EVENING)
     Route: 058
     Dates: start: 20170119, end: 20170119

REACTIONS (70)
  - Metastases to soft tissue [Not Recovered/Not Resolved]
  - Metastases to lymph nodes [Unknown]
  - Chest pain [Unknown]
  - Fistula [Unknown]
  - C-reactive protein increased [Unknown]
  - Emphysema [Unknown]
  - Glycosylated haemoglobin increased [Unknown]
  - Low density lipoprotein increased [Unknown]
  - Blood cholesterol increased [Unknown]
  - Musculoskeletal pain [Unknown]
  - Paraesthesia [Unknown]
  - Abnormal faeces [Unknown]
  - Blood creatinine decreased [Unknown]
  - Insomnia [Unknown]
  - Dysphagia [Unknown]
  - Abdominal pain lower [Unknown]
  - Haemoglobin decreased [Unknown]
  - Swelling [Unknown]
  - Squamous cell carcinoma of head and neck [Unknown]
  - Blood thyroid stimulating hormone decreased [Unknown]
  - Hepatic steatosis [Unknown]
  - Acne [Unknown]
  - Hypoacusis [Unknown]
  - Platelet count decreased [Unknown]
  - Headache [Unknown]
  - Neutropenia [Unknown]
  - Intervertebral disc degeneration [Unknown]
  - C-reactive protein increased [Unknown]
  - Mean cell haemoglobin concentration increased [Unknown]
  - White blood cell count decreased [Unknown]
  - Skin hyperpigmentation [Unknown]
  - Blood pressure abnormal [Unknown]
  - Pulse abnormal [Unknown]
  - Glomerular filtration rate decreased [Unknown]
  - Diverticulitis [Unknown]
  - Pyrexia [Unknown]
  - Lymphadenopathy [Unknown]
  - General physical health deterioration [Unknown]
  - Abdominal hernia [Unknown]
  - Dysphonia [Unknown]
  - Vocal cord paresis [Unknown]
  - Visual impairment [Unknown]
  - Osteoarthritis [Unknown]
  - Infection [Unknown]
  - Mucosal inflammation [Unknown]
  - Oedema [Unknown]
  - Lymphoedema [Not Recovered/Not Resolved]
  - Body temperature abnormal [Unknown]
  - Constipation [Unknown]
  - Nausea [Unknown]
  - Activated partial thromboplastin time shortened [Unknown]
  - Tri-iodothyronine decreased [Unknown]
  - Blood glucose increased [Unknown]
  - Fibrosis [Unknown]
  - Weight decreased [Unknown]
  - Dysgeusia [Unknown]
  - Haematocrit decreased [Unknown]
  - Oropharyngeal pain [Unknown]
  - Lymphoedema [Unknown]
  - Hypopharyngeal cancer recurrent [Not Recovered/Not Resolved]
  - Paresis [Unknown]
  - Ischaemic cerebral infarction [Recovered/Resolved]
  - Glaucoma [Unknown]
  - Pain [Unknown]
  - Dry mouth [Unknown]
  - Red blood cell count decreased [Unknown]
  - Gamma-glutamyltransferase increased [Unknown]
  - Fatigue [Unknown]
  - Mucosal dryness [Unknown]
  - Dysphagia [Unknown]

NARRATIVE: CASE EVENT DATE: 201204
